FAERS Safety Report 4579103-7 (Version None)
Quarter: 2005Q1

REPORT INFORMATION
  Report Type: 
  Country: None (occurrence: None)
  Receive Date: 20050119
  Receipt Date: 20040819
  Transmission Date: 20050727
  Serious: Yes (Other)
  Sender: FDA-Public Use
  Company Number: A03200402857

PATIENT
  Age: 56 Year
  Sex: Female
  Weight: 72.5755 kg

DRUGS (5)
  1. PLAVIX [Suspect]
     Indication: PERIPHERAL VASCULAR DISORDER
     Dosage: 75 MG QD - ORAL
     Route: 048
     Dates: start: 20031001, end: 20040819
  2. ACETYLSALICYLIC ACID [Concomitant]
     Indication: HAEMORRHAGIC STROKE
  3. GEMFIBROZIL [Concomitant]
  4. METFORMIN HCL [Concomitant]
  5. LORAZEPAM [Concomitant]

REACTIONS (3)
  - EPISTAXIS [None]
  - HAEMATEMESIS [None]
  - HAEMOPTYSIS [None]
